FAERS Safety Report 18002436 (Version 1)
Quarter: 2020Q3

REPORT INFORMATION
  Report Type: Spontaneous
  Country: AE (occurrence: AE)
  Receive Date: 20200709
  Receipt Date: 20200709
  Transmission Date: 20201103
  Serious: Yes (Other)
  Sender: FDA-Public Use
  Company Number: AE-ASTRAZENECA-2020SE85206

PATIENT
  Age: 14255 Day
  Sex: Male

DRUGS (1)
  1. IMFINZI [Suspect]
     Active Substance: DURVALUMAB
     Indication: NON-SMALL CELL LUNG CANCER
     Route: 042
     Dates: start: 20190725, end: 20200618

REACTIONS (3)
  - Malignant neoplasm progression [Unknown]
  - Bladder pain [Unknown]
  - Penile swelling [Unknown]

NARRATIVE: CASE EVENT DATE: 20200618
